FAERS Safety Report 4435219-7 (Version None)
Quarter: 2004Q3

REPORT INFORMATION
  Report Type: 
  Country: None (occurrence: None)
  Receive Date: 20040827
  Receipt Date: 20040706
  Transmission Date: 20050211
  Serious: Yes (Hospitalization, Other)
  Sender: FDA-Public Use
  Company Number: US-GLAXOSMITHKLINE-A0517066A

PATIENT
  Age: 90 Year
  Sex: Male

DRUGS (5)
  1. VALTREX [Suspect]
     Indication: HERPES ZOSTER
     Dosage: 1G THREE TIMES PER DAY
     Route: 048
     Dates: start: 20040625, end: 20040626
  2. ACYCLOVIR [Suspect]
     Dosage: 500MG TWICE PER DAY
     Route: 042
     Dates: start: 20040628, end: 20040705
  3. ALLOPURINOL [Concomitant]
     Dates: end: 20040627
  4. SKELAXIN [Concomitant]
     Dates: end: 20040627
  5. LASIX [Concomitant]
     Dates: end: 20040627

REACTIONS (3)
  - CONFUSIONAL STATE [None]
  - HALLUCINATION [None]
  - HIP FRACTURE [None]
